FAERS Safety Report 17039332 (Version 2)
Quarter: 2019Q4

REPORT INFORMATION
  Report Type: Report from Study
  Country: US (occurrence: US)
  Receive Date: 20191115
  Receipt Date: 20191122
  Transmission Date: 20200122
  Serious: Yes (Other)
  Sender: FDA-Public Use
  Company Number: US-BRISTOL-MYERS SQUIBB COMPANY-BMS-2019-108204

PATIENT
  Age: 67 Year
  Sex: Female
  Weight: 59 kg

DRUGS (2)
  1. NIVOLUMAB [Suspect]
     Active Substance: NIVOLUMAB
     Indication: GLIOBLASTOMA MULTIFORME
     Dosage: 240 MILLIGRAM
     Route: 042
     Dates: start: 20191002, end: 20191002
  2. RELATLIMAB [Suspect]
     Active Substance: RELATLIMAB
     Indication: GLIOBLASTOMA MULTIFORME
     Dosage: 160 MILLIGRAM
     Route: 042
     Dates: start: 20191002, end: 20191002

REACTIONS (1)
  - Thyroiditis [Recovered/Resolved]

NARRATIVE: CASE EVENT DATE: 20191103
